FAERS Safety Report 13448177 (Version 1)
Quarter: 2017Q2

REPORT INFORMATION
  Report Type: Report from Study
  Country: ES (occurrence: ES)
  Receive Date: 20170417
  Receipt Date: 20170417
  Transmission Date: 20170830
  Serious: Yes (Life-Threatening, Hospitalization)
  Sender: FDA-Public Use
  Company Number: ES-MYLANLABS-2017M1021956

PATIENT

DRUGS (7)
  1. ALDOCUMAR [Concomitant]
     Active Substance: WARFARIN SODIUM
     Route: 048
     Dates: start: 2010, end: 20150423
  2. DIGOXINA [Interacting]
     Active Substance: DIGOXIN
     Indication: ATRIAL FIBRILLATION
     Route: 048
     Dates: start: 2006, end: 20150423
  3. PIRIDOXINA                         /00058901/ [Concomitant]
     Indication: ANTIBIOTIC PROPHYLAXIS
     Route: 048
     Dates: start: 20141205
  4. RYTMONORM 300 MG COMPRIMIDOS RECUBIERTOS [Suspect]
     Active Substance: PROPAFENONE
     Indication: ATRIAL FIBRILLATION
     Route: 048
     Dates: start: 200705
  5. SEGURIL [Concomitant]
     Active Substance: FUROSEMIDE
     Route: 048
     Dates: start: 2010, end: 20150423
  6. ARTEDIL [Interacting]
     Active Substance: MANIDIPINE HYDROCHLORIDE
     Indication: HYPERTENSION
     Route: 048
     Dates: start: 2010, end: 20150423
  7. ISONIAZIDA [Concomitant]
     Active Substance: ISONIAZID
     Indication: ANTIBIOTIC PROPHYLAXIS
     Route: 048
     Dates: start: 20141205

REACTIONS (3)
  - Cardioactive drug level increased [Recovered/Resolved]
  - Atrioventricular block [Recovered/Resolved]
  - Nodal rhythm [Recovered/Resolved]

NARRATIVE: CASE EVENT DATE: 20150421
